FAERS Safety Report 24986223 (Version 2)
Quarter: 2025Q1

REPORT INFORMATION
  Report Type: Report from Study
  Country: US (occurrence: US)
  Receive Date: 20250219
  Receipt Date: 20250319
  Transmission Date: 20250409
  Serious: Yes (Other)
  Sender: OTSUKA
  Company Number: US-OTSUKA-2024_033960

PATIENT
  Sex: Male

DRUGS (1)
  1. TOLVAPTAN [Suspect]
     Active Substance: TOLVAPTAN
     Indication: Congenital cystic kidney disease
     Route: 065
     Dates: start: 20241130

REACTIONS (6)
  - Jaw operation [Not Recovered/Not Resolved]
  - Jaw cyst [Not Recovered/Not Resolved]
  - Influenza like illness [Not Recovered/Not Resolved]
  - Nocturia [Not Recovered/Not Resolved]
  - Thirst [Unknown]
  - Polyuria [Unknown]

NARRATIVE: CASE EVENT DATE: 20241209
